FAERS Safety Report 7744678-3 (Version None)
Quarter: 2011Q3

REPORT INFORMATION
  Report Type: 
  Country: None (occurrence: None)
  Receive Date: 20110912
  Receipt Date: 20110905
  Transmission Date: 20111222
  Serious: Yes (Other)
  Sender: FDA-Public Use
  Company Number: PHHY2011JP80063

PATIENT
  Age: 54 Year
  Sex: Male

DRUGS (3)
  1. VOLTAREN [Suspect]
     Indication: PAIN
     Dosage: 150 MG, DAILY
     Route: 054
  2. VOLTAREN [Concomitant]
     Dosage: 25 MG, UNK
     Route: 048
  3. ACETAMINOPHEN [Concomitant]
     Indication: PAIN
     Dosage: 1200 MG, DAILY
     Route: 048

REACTIONS (3)
  - PAIN [None]
  - DRUG EFFECT DECREASED [None]
  - DRUG DEPENDENCE [None]
